FAERS Safety Report 9372627 (Version 1)
Quarter: 2013Q2

REPORT INFORMATION
  Report Type: Spontaneous
  Country: US (occurrence: US)
  Receive Date: 20130627
  Receipt Date: 20130627
  Transmission Date: 20140414
  Serious: No
  Sender: FDA-Public Use
  Company Number: US-MYLANLABS-2013S1003350

PATIENT
  Age: 29 Year
  Sex: Male

DRUGS (3)
  1. CLOZAPINE TABLETS [Suspect]
     Indication: PRODUCT USED FOR UNKNOWN INDICATION
     Route: 048
     Dates: start: 201301, end: 201302
  2. ZOLPIDEM [Concomitant]
     Dosage: ER FORMULATION
  3. TRAZODONE [Concomitant]

REACTIONS (1)
  - VIIth nerve paralysis [Not Recovered/Not Resolved]
